FAERS Safety Report 14665736 (Version 2)
Quarter: 2018Q1

REPORT INFORMATION
  Report Type: Spontaneous
  Country: US (occurrence: US)
  Receive Date: 20180321
  Receipt Date: 20180331
  Transmission Date: 20180509
  Serious: Yes (Hospitalization)
  Sender: FDA-Public Use
  Company Number: US-TEVA-2018-US-873009

PATIENT
  Age: 63 Year
  Sex: Male

DRUGS (1)
  1. DICLOFENAC [Suspect]
     Active Substance: DICLOFENAC
     Indication: OSTEOARTHRITIS
     Dosage: LONG-TERM USE
     Route: 065

REACTIONS (6)
  - Diverticulum intestinal [Recovered/Resolved]
  - Microcytic anaemia [Recovering/Resolving]
  - Abnormal loss of weight [Recovered/Resolved]
  - Gastric ulcer [Recovering/Resolving]
  - Large intestinal ulcer [Recovered/Resolved]
  - Large intestinal stenosis [Recovered/Resolved]
